FAERS Safety Report 9310178 (Version 4)
Quarter: 2013Q3

REPORT INFORMATION
  Report Type: Report from Study
  Country: IT (occurrence: IT)
  Receive Date: 20130527
  Receipt Date: 20130813
  Transmission Date: 20140515
  Serious: Yes (Hospitalization)
  Sender: FDA-Public Use
  Company Number: IT-009507513-1305ITA013364

PATIENT
  Age: 72 Year
  Sex: Male
  Weight: 68.8 kg

DRUGS (7)
  1. BOCEPREVIR [Suspect]
     Indication: CHRONIC HEPATITIS C
     Dosage: 2400 MG/DAY
     Route: 048
     Dates: start: 20130424
  2. BOCEPREVIR [Suspect]
     Indication: HEPATIC CIRRHOSIS
  3. PEGINTRON [Suspect]
     Indication: CHRONIC HEPATITIS C
     Dosage: 108 MICROGRAM, QW
     Route: 058
     Dates: start: 20130326, end: 201305
  4. PEGINTRON [Suspect]
     Indication: HEPATIC CIRRHOSIS
     Dosage: 80 MICROGRAM, QW
     Route: 058
     Dates: start: 20130522
  5. REBETOL [Suspect]
     Indication: CHRONIC HEPATITIS C
     Dosage: 1000 MG/DAY
     Route: 048
     Dates: start: 20130326, end: 2013
  6. REBETOL [Suspect]
     Indication: HEPATIC CIRRHOSIS
     Dosage: 600 MG/DAY
     Route: 048
     Dates: start: 2013, end: 20130522
  7. REBETOL [Suspect]
     Dosage: 600 MG/DAY
     Route: 048
     Dates: start: 2013

REACTIONS (1)
  - Pneumonia [Recovered/Resolved]
